FAERS Safety Report 25737278 (Version 1)
Quarter: 2025Q3

REPORT INFORMATION
  Report Type: Spontaneous
  Country: US (occurrence: US)
  Receive Date: 20250828
  Receipt Date: 20250828
  Transmission Date: 20251021
  Serious: Yes (Other)
  Sender: COOPERSURGICAL
  Company Number: US-COOPERSURGICAL, INC.-2025CPS006175

PATIENT
  Sex: Female
  Weight: 85.714 kg

DRUGS (1)
  1. PARAGARD T 380A [Suspect]
     Active Substance: COPPER
     Indication: Contraception
     Route: 015
     Dates: start: 20120504

REACTIONS (20)
  - Iatrogenic injury [Unknown]
  - Surgery [Recovered/Resolved]
  - Device breakage [Recovered/Resolved]
  - Foreign body in reproductive tract [Recovered/Resolved]
  - Complication of device removal [Recovered/Resolved]
  - Uterine perforation [Unknown]
  - Complication associated with device [Recovered/Resolved]
  - Vulvovaginal discomfort [Unknown]
  - Device issue [Recovered/Resolved]
  - Procedural pain [Recovered/Resolved]
  - Post procedural haemorrhage [Recovered/Resolved]
  - Depression [Unknown]
  - Anxiety [Unknown]
  - Stress [Unknown]
  - Pelvic pain [Unknown]
  - Abdominal pain [Unknown]
  - Bacterial vaginosis [Unknown]
  - Vaginal discharge [Unknown]
  - Muscle spasms [Unknown]
  - Intermenstrual bleeding [Unknown]

NARRATIVE: CASE EVENT DATE: 20120101
